FAERS Safety Report 19062414 (Version 1)
Quarter: 2021Q1

REPORT INFORMATION
  Report Type: Spontaneous
  Country: PT (occurrence: PT)
  Receive Date: 20210326
  Receipt Date: 20210326
  Transmission Date: 20210420
  Serious: Yes (Hospitalization, Other)
  Sender: FDA-Public Use
  Company Number: PT-PERRIGO-21PT004006

PATIENT
  Age: 33 Year
  Sex: Female

DRUGS (4)
  1. VACCINES [Suspect]
     Active Substance: UNSPECIFIED INGREDIENT
     Indication: COVID-19 IMMUNISATION
     Dosage: 0.3 ML, SINGLE
     Route: 030
     Dates: start: 20210130, end: 20210130
  2. PARACETAMOL [Concomitant]
     Active Substance: ACETAMINOPHEN
     Indication: MYALGIA
     Route: 065
  3. IBUPROFEN. [Suspect]
     Active Substance: IBUPROFEN
     Indication: MYALGIA
     Dosage: 600 MG
     Route: 048
  4. METAMIZOLE [Concomitant]
     Active Substance: METAMIZOLE
     Indication: MYALGIA
     Dosage: 575 MG, 3X/DAY
     Route: 048

REACTIONS (5)
  - Myalgia [Unknown]
  - Myelosuppression [Recovered/Resolved]
  - Pancytopenia [Recovered/Resolved]
  - Renal tubular necrosis [Recovered/Resolved]
  - Thrombotic microangiopathy [Unknown]

NARRATIVE: CASE EVENT DATE: 2021
